FAERS Safety Report 18404532 (Version 2)
Quarter: 2020Q4

REPORT INFORMATION
  Report Type: Spontaneous
  Country: BE (occurrence: BE)
  Receive Date: 20201020
  Receipt Date: 20201126
  Transmission Date: 20210114
  Serious: Yes (Hospitalization)
  Sender: FDA-Public Use
  Company Number: BE-TAKEDA-2020TEU009890

PATIENT

DRUGS (1)
  1. TACHOSIL [Suspect]
     Active Substance: FIBRINOGEN HUMAN\THROMBIN HUMAN
     Indication: CYSTOSTOMY
     Dosage: UNK
     Route: 065

REACTIONS (3)
  - Product adhesion issue [Recovered/Resolved]
  - Post procedural complication [Recovered/Resolved]
  - Adverse event [Recovered/Resolved]
